FAERS Safety Report 6166361-0 (Version None)
Quarter: 2009Q2

REPORT INFORMATION
  Report Type: 
  Country: None (occurrence: None)
  Receive Date: 20090424
  Receipt Date: 20080424
  Transmission Date: 20091009
  Serious: No
  Sender: FDA-Public Use
  Company Number: A0724575A

PATIENT
  Age: 48 Year
  Sex: Male

DRUGS (2)
  1. DEXAMPHETAMINE SULPHATE [Suspect]
     Indication: ATTENTION DEFICIT/HYPERACTIVITY DISORDER
     Dosage: 15MG TWICE PER DAY
     Route: 048
     Dates: start: 20070101
  2. VALIUM [Concomitant]

REACTIONS (4)
  - HEADACHE [None]
  - INSOMNIA [None]
  - MALAISE [None]
  - PSYCHOMOTOR HYPERACTIVITY [None]
